FAERS Safety Report 17494617 (Version 2)
Quarter: 2021Q1

REPORT INFORMATION
  Report Type: Spontaneous
  Country: US (occurrence: US)
  Receive Date: 20200303
  Receipt Date: 20210303
  Transmission Date: 20210419
  Serious: No
  Sender: FDA-Public Use
  Company Number: US-AMNEAL PHARMACEUTICALS-2019-AMRX-02370

PATIENT
  Age: 68 Year
  Sex: Female

DRUGS (4)
  1. CARBIDOPA AND LEVODOPA [Concomitant]
     Active Substance: CARBIDOPA\LEVODOPA
     Indication: PARKINSON^S DISEASE
     Dosage: UNK; TAKING IN BETWEEN RYTARY
     Route: 065
     Dates: start: 20201201
  2. GABAPENTIN. [Suspect]
     Active Substance: GABAPENTIN
     Indication: ARTHRALGIA
     Dosage: 100 MILLIGRAM, TID
     Route: 065
  3. RYTARY [Suspect]
     Active Substance: CARBIDOPA\LEVODOPA
     Indication: PARKINSON^S DISEASE
     Dosage: 48.75?195MG, 1 CAPSULES, QID (AT 7AM, 12PM, 5PM, AND 10PM)
     Route: 048
     Dates: start: 2018
  4. RYTARY [Suspect]
     Active Substance: CARBIDOPA\LEVODOPA
     Dosage: 61.25?245MG, 1 CAPSULES, QID (AT 7AM, 12PM, 5PM, AND 10PM)
     Route: 048
     Dates: start: 2018

REACTIONS (8)
  - Joint swelling [Recovering/Resolving]
  - Influenza [Unknown]
  - Sinusitis [Unknown]
  - Gastric disorder [Unknown]
  - Malaise [Unknown]
  - Therapeutic response shortened [Not Recovered/Not Resolved]
  - Decreased appetite [Unknown]
  - Weight decreased [Unknown]

NARRATIVE: CASE EVENT DATE: 20191016
